FAERS Safety Report 6144096-8 (Version None)
Quarter: 2009Q2

REPORT INFORMATION
  Report Type: 
  Country: None (occurrence: None)
  Receive Date: 20090406
  Receipt Date: 20090330
  Transmission Date: 20091009
  Serious: Yes (Other)
  Sender: FDA-Public Use
  Company Number: US-ASTRAZENECA-2009UW07986

PATIENT
  Age: 45 Year
  Sex: Female
  Weight: 59 kg

DRUGS (1)
  1. ARIMIDEX [Suspect]
     Indication: BREAST CANCER
     Route: 048
     Dates: start: 20051201

REACTIONS (4)
  - ARTHRALGIA [None]
  - HEPATIC CYST [None]
  - HOT FLUSH [None]
  - WEIGHT INCREASED [None]
